FAERS Safety Report 4802565-4 (Version None)
Quarter: 2005Q4

REPORT INFORMATION
  Report Type: 
  Country: None (occurrence: None)
  Receive Date: 20051011
  Receipt Date: 20050929
  Transmission Date: 20060501
  Serious: Yes (Hospitalization)
  Sender: FDA-Public Use
  Company Number: 2005136290

PATIENT
  Age: 73 Year
  Sex: Female
  Weight: 88.4514 kg

DRUGS (15)
  1. LYRICA [Suspect]
     Indication: NEURALGIA
     Dosage: 150 MG (75 MG, 2 IN 1 D), ORAL
     Route: 048
     Dates: start: 20050921
  2. NORVASC [Concomitant]
  3. ELAVIL [Concomitant]
  4. PROZAC [Concomitant]
  5. DYAZIDE [Concomitant]
  6. CAPTOPRIL [Concomitant]
  7. CLARITIN [Concomitant]
  8. SINGULAIR ^DIECKMANN^ (MONTELUKAST SODIUM) [Concomitant]
  9. VALIUM [Concomitant]
  10. THYROXINE (LEVOTHYROXINE) [Concomitant]
  11. ALL OTHER THERAPEUTIC PRODUCTS (ALL OTHER THERAPEUTIC PRODUCTS) [Concomitant]
  12. ADVAIR DISKUS 100/50 [Concomitant]
  13. COMBIVENT [Concomitant]
  14. OXYCONTIN [Concomitant]
  15. PERCOCET [Concomitant]

REACTIONS (3)
  - DEPRESSED LEVEL OF CONSCIOUSNESS [None]
  - DIZZINESS [None]
  - SOMNOLENCE [None]
